FAERS Safety Report 15043993 (Version 1)
Quarter: 2018Q2

REPORT INFORMATION
  Report Type: Spontaneous
  Country: US (occurrence: US)
  Receive Date: 20180621
  Receipt Date: 20180621
  Transmission Date: 20180711
  Serious: No
  Sender: FDA-Public Use
  Company Number: US-GLAXOSMITHKLINE-US2018101053

PATIENT
  Age: 37 Year
  Sex: Male

DRUGS (3)
  1. TARGET NICOTINE [Suspect]
     Active Substance: NICOTINE
     Dosage: 21 MG, UNK
  2. NICOTINE POLACRILEX [Suspect]
     Active Substance: NICOTINE
     Indication: SMOKING CESSATION THERAPY
     Dosage: UNK
  3. TARGET NICOTINE [Suspect]
     Active Substance: NICOTINE
     Indication: SMOKING CESSATION THERAPY
     Dosage: 21 MG, UNK

REACTIONS (2)
  - Drug ineffective [Unknown]
  - Product quality issue [Unknown]
